FAERS Safety Report 15306240 (Version 2)
Quarter: 2018Q3

REPORT INFORMATION
  Report Type: Spontaneous
  Country: US (occurrence: US)
  Receive Date: 20180822
  Receipt Date: 20180904
  Transmission Date: 20181010
  Serious: No
  Sender: FDA-Public Use
  Company Number: US-PFIZER INC-2018337766

PATIENT
  Sex: Female

DRUGS (1)
  1. LYRICA [Suspect]
     Active Substance: PREGABALIN
     Indication: MASS
     Dosage: 200 MG, UNK

REACTIONS (4)
  - Withdrawal syndrome [Unknown]
  - Drug ineffective for unapproved indication [Unknown]
  - Pain [Unknown]
  - Dissociation [Unknown]
